FAERS Safety Report 18180378 (Version 1)
Quarter: 2020Q3

REPORT INFORMATION
  Report Type: Spontaneous
  Country: US (occurrence: US)
  Receive Date: 20200821
  Receipt Date: 20200821
  Transmission Date: 20201103
  Serious: No
  Sender: FDA-Public Use
  Company Number: None

PATIENT
  Age: 27 Year
  Sex: Female
  Weight: 85.5 kg

DRUGS (1)
  1. NUVARING [Suspect]
     Active Substance: ETHINYL ESTRADIOL\ETONOGESTREL
     Indication: CONTRACEPTION

REACTIONS (13)
  - Burning sensation [None]
  - Abdominal pain [None]
  - Apathy [None]
  - Fatigue [None]
  - Breast tenderness [None]
  - Decreased appetite [None]
  - Headache [None]
  - Back pain [None]
  - Mood swings [None]
  - Dyspareunia [None]
  - Muscle spasms [None]
  - Depressed mood [None]
  - Abdominal distension [None]

NARRATIVE: CASE EVENT DATE: 20200805
